FAERS Safety Report 10034694 (Version 4)
Quarter: 2014Q2

REPORT INFORMATION
  Report Type: Spontaneous
  Country: IT (occurrence: None)
  Receive Date: 20140321
  Receipt Date: 20140523
  Transmission Date: 20141212
  Serious: Yes (Life-Threatening)
  Sender: FDA-Public Use
  Company Number: FK201400936

PATIENT
  Age: 82 Year
  Sex: Female

DRUGS (14)
  1. LEVOFLOXACIN [Suspect]
     Indication: SEPSIS
     Route: 041
     Dates: start: 20140215, end: 20140224
  2. FENITOINA HIKMA [Suspect]
     Indication: SUBARACHNOID HAEMORRHAGE
     Dosage: 300 MG, 1 IN 1 D, INTRAVENOUS DRIP
     Route: 041
     Dates: start: 20140213, end: 20140227
  3. PARACETAMOL [Suspect]
     Indication: PYREXIA
     Dosage: 4 DOSAGE FORMS, 1 IN 1 D, INTRAVENOUS DRIP
     Route: 041
     Dates: start: 20140219, end: 20140306
  4. FIDATO [Suspect]
     Indication: SEPSIS
     Dosage: 2 GM, 1 IN 1 D, INTRAVENOUS DRIP
     Route: 041
     Dates: start: 20140221, end: 20140304
  5. VOLTAREN [Suspect]
     Indication: PYREXIA
     Dosage: 1 IN 1 TOTAL
     Route: 030
     Dates: start: 20140221, end: 20140301
  6. VANCOMICINA HIKMA [Suspect]
     Indication: SEPSIS
     Dosage: 1 DOSAGE FORMS, 1 IN 1 D, INTRAVENOUS (NOT OTHERWISE SPECIFIED)?
     Route: 042
     Dates: start: 20140224, end: 20140306
  7. KEPPRA [Suspect]
     Indication: SUBARACHNOID HAEMORRHAGE
     Dosage: 500 MG, 1 IN 1 D, INTRAVENOUS DRIP
     Route: 041
     Dates: start: 20140228, end: 20140308
  8. ESOMEPRAZOLE SODIUM [Concomitant]
  9. PROPOFOL [Concomitant]
  10. FUROSEMIDE (FUROSEMIDE) (FUROSEMIDE) [Concomitant]
  11. CATAPRESAN TTS [Concomitant]
  12. ALBUMINA [Concomitant]
  13. NIMBEX [Concomitant]
  14. ENAPREN [Concomitant]

REACTIONS (5)
  - Toxic epidermal necrolysis [None]
  - Toxic epidermal necrolysis [None]
  - Drug reaction with eosinophilia and systemic symptoms [None]
  - Exfoliative rash [None]
  - Gamma-glutamyltransferase increased [None]
